FAERS Safety Report 6691433-1 (Version None)
Quarter: 2010Q2

REPORT INFORMATION
  Report Type: 
  Country: None (occurrence: None)
  Receive Date: 20100422
  Receipt Date: 20100413
  Transmission Date: 20101027
  Serious: Yes (Hospitalization, Other)
  Sender: FDA-Public Use
  Company Number: US-ASTRAZENECA-2010SE11549

PATIENT
  Age: 19856 Day
  Sex: Male
  Weight: 92.5 kg

DRUGS (4)
  1. CRESTOR [Suspect]
     Indication: BLOOD CHOLESTEROL INCREASED
     Route: 048
     Dates: start: 20080101, end: 20100214
  2. LIPITOR [Suspect]
     Indication: BLOOD CHOLESTEROL INCREASED
     Route: 048
  3. ATACAND [Concomitant]
     Route: 048
  4. ALDACTONE [Concomitant]

REACTIONS (8)
  - DEHYDRATION [None]
  - ELECTROLYTE IMBALANCE [None]
  - FLANK PAIN [None]
  - HYPONATRAEMIA [None]
  - LOW DENSITY LIPOPROTEIN DECREASED [None]
  - MYALGIA [None]
  - RHABDOMYOLYSIS [None]
  - WEIGHT DECREASED [None]
